FAERS Safety Report 6131263-2 (Version None)
Quarter: 2009Q1

REPORT INFORMATION
  Report Type: 
  Country: None (occurrence: None)
  Receive Date: 20090325
  Receipt Date: 20080212
  Transmission Date: 20090719
  Serious: Yes (Disabling)
  Sender: FDA-Public Use
  Company Number: US-BRISTOL-MYERS SQUIBB COMPANY-14074181

PATIENT
  Age: 63 Year
  Sex: Male
  Weight: 46 kg

DRUGS (1)
  1. ERBITUX [Suspect]
     Indication: TONGUE NEOPLASM MALIGNANT STAGE UNSPECIFIED
     Dosage: PRODUCT STRENGTH - 200MG-2MG/ML.
     Route: 042
     Dates: start: 20071127, end: 20071127

REACTIONS (1)
  - INFUSION RELATED REACTION [None]
